FAERS Safety Report 9830702 (Version 3)
Quarter: 2017Q1

REPORT INFORMATION
  Report Type: Report from Study
  Country: CA (occurrence: CA)
  Receive Date: 20140120
  Receipt Date: 20170125
  Transmission Date: 20170429
  Serious: Yes (Other)
  Sender: FDA-Public Use
  Company Number: CA-BAXTER-2013BAX030723

PATIENT

DRUGS (2)
  1. FORANE [Suspect]
     Active Substance: ISOFLURANE
     Indication: STATUS EPILEPTICUS
     Route: 055
  2. FORANE [Suspect]
     Active Substance: ISOFLURANE
     Indication: OFF LABEL USE

REACTIONS (1)
  - Cerebral disorder [Unknown]
